FAERS Safety Report 13067645 (Version 2)
Quarter: 2017Q1

REPORT INFORMATION
  Report Type: Spontaneous
  Country: US (occurrence: US)
  Receive Date: 20161228
  Receipt Date: 20170322
  Transmission Date: 20170428
  Serious: No
  Sender: FDA-Public Use
  Company Number: US-009507513-1612USA008349

PATIENT
  Sex: Male
  Weight: 107.94 kg

DRUGS (1)
  1. VYTORIN [Suspect]
     Active Substance: EZETIMIBE\SIMVASTATIN
     Indication: TYPE V HYPERLIPIDAEMIA
     Dosage: 10/20 MG, QD
     Route: 048
     Dates: start: 20100322, end: 20110322

REACTIONS (2)
  - Drug hypersensitivity [Unknown]
  - Myalgia [Recovered/Resolved]
